FAERS Safety Report 16483348 (Version 1)
Quarter: 2019Q2

REPORT INFORMATION
  Report Type: Spontaneous
  Country: DE (occurrence: DE)
  Receive Date: 20190627
  Receipt Date: 20190627
  Transmission Date: 20190711
  Serious: Yes (Other)
  Sender: FDA-Public Use
  Company Number: DE-009507513-1906DEU007098

PATIENT
  Sex: Female

DRUGS (1)
  1. TIOBLIS 10 MG/10 MG [Suspect]
     Active Substance: ATORVASTATIN\EZETIMIBE
     Route: 048

REACTIONS (5)
  - Product quality issue [Unknown]
  - Limb injury [Unknown]
  - Haemorrhage [Unknown]
  - Wound complication [Unknown]
  - Product use issue [Unknown]

NARRATIVE: CASE EVENT DATE: 201906
